FAERS Safety Report 18682927 (Version 1)
Quarter: 2020Q4

REPORT INFORMATION
  Report Type: Spontaneous
  Country: JP (occurrence: JP)
  Receive Date: 20201230
  Receipt Date: 20201230
  Transmission Date: 20210114
  Serious: Yes (Hospitalization, Other)
  Sender: FDA-Public Use
  Company Number: NVSC2020JP343025

PATIENT
  Age: 84 Year
  Sex: Male

DRUGS (2)
  1. RIVASTACH [Suspect]
     Active Substance: RIVASTIGMINE
     Dosage: 4.5 MG
     Route: 065
  2. RIVASTACH [Suspect]
     Active Substance: RIVASTIGMINE
     Indication: DEMENTIA ALZHEIMER^S TYPE
     Dosage: 18 MG, TAPE (INCLUDING POULTICE)
     Route: 062
     Dates: end: 20201215

REACTIONS (2)
  - Depressed level of consciousness [Unknown]
  - Epilepsy [Unknown]
